FAERS Safety Report 7615821-1 (Version None)
Quarter: 2011Q3

REPORT INFORMATION
  Report Type: 
  Country: None (occurrence: None)
  Receive Date: 20110711
  Receipt Date: 20110623
  Transmission Date: 20111222
  Serious: No
  Sender: FDA-Public Use
  Company Number: TCI2011A03685

PATIENT
  Sex: Female

DRUGS (2)
  1. METFORMIN HYDROCHLORIDE [Concomitant]
  2. ACTOS [Suspect]
     Dosage: PER ORAL

REACTIONS (1)
  - BLADDER CANCER [None]
